FAERS Safety Report 19067317 (Version 1)
Quarter: 2021Q1

REPORT INFORMATION
  Report Type: Report from Study
  Country: US (occurrence: US)
  Receive Date: 20210329
  Receipt Date: 20210329
  Transmission Date: 20210420
  Serious: Yes (Death, Hospitalization)
  Sender: FDA-Public Use
  Company Number: US-BTGSP-US-BTGSP-21-0044

PATIENT
  Age: 75 Year
  Sex: Female

DRUGS (2)
  1. CROFAB [Suspect]
     Active Substance: CROTALIDAE POLYVALENT IMMUNE FAB (OVINE)
     Dosage: 6 VIALS
     Route: 065
     Dates: start: 2020
  2. CROFAB [Suspect]
     Active Substance: CROTALIDAE POLYVALENT IMMUNE FAB (OVINE)
     Indication: SNAKE BITE
     Dosage: 11 VIALS
     Route: 065
     Dates: start: 2020

REACTIONS (2)
  - Death [Fatal]
  - Coagulopathy [Unknown]

NARRATIVE: CASE EVENT DATE: 2020
